FAERS Safety Report 15658164 (Version 1)
Quarter: 2018Q4

REPORT INFORMATION
  Report Type: Spontaneous
  Country: SE (occurrence: SE)
  Receive Date: 20181126
  Receipt Date: 20181126
  Transmission Date: 20190205
  Serious: Yes (Other)
  Sender: FDA-Public Use
  Company Number: SE-TEVA-2018-SE-978677

PATIENT
  Age: 84 Year
  Sex: Female

DRUGS (5)
  1. SALURES [Concomitant]
     Active Substance: BENDROFLUMETHIAZIDE
  2. WARAN [Suspect]
     Active Substance: WARFARIN SODIUM
     Indication: ATRIAL FIBRILLATION
     Route: 065
     Dates: start: 20130115
  3. OMEPRAZOLE. [Concomitant]
     Active Substance: OMEPRAZOLE
  4. METOPROLOL. [Concomitant]
     Active Substance: METOPROLOL
  5. GLIMEPIRIDE ACTAVIS [Suspect]
     Active Substance: GLIMEPIRIDE
     Dosage: 1 MILLIGRAM DAILY;
     Route: 048
     Dates: start: 20130618, end: 20130702

REACTIONS (1)
  - International normalised ratio increased [Recovered/Resolved]

NARRATIVE: CASE EVENT DATE: 20130701
